FAERS Safety Report 18257789 (Version 5)
Quarter: 2020Q4

REPORT INFORMATION
  Report Type: Report from Study
  Country: CO (occurrence: CO)
  Receive Date: 20200911
  Receipt Date: 20201207
  Transmission Date: 20210113
  Serious: Yes (Hospitalization)
  Sender: FDA-Public Use
  Company Number: NVSC2020CO061781

PATIENT
  Age: 33 Year
  Sex: Female
  Weight: 57 kg

DRUGS (7)
  1. TASIGNA [Suspect]
     Active Substance: NILOTINIB
     Dosage: 800 MG, QD
     Route: 048
     Dates: start: 2017, end: 201905
  2. TASIGNA [Suspect]
     Active Substance: NILOTINIB
     Dosage: 400 MG, Q12H
     Route: 048
  3. TASIGNA [Suspect]
     Active Substance: NILOTINIB
     Dosage: 600 MG, QD (EVERY 24 HOURS)
     Route: 048
     Dates: start: 202008
  4. TASIGNA [Suspect]
     Active Substance: NILOTINIB
     Indication: CHRONIC MYELOID LEUKAEMIA
     Dosage: 400 MG, Q12H
     Route: 048
     Dates: start: 20080424
  5. TASIGNA [Suspect]
     Active Substance: NILOTINIB
     Dosage: 400 MG, Q12H
     Route: 048
     Dates: start: 202008
  6. TASIGNA [Suspect]
     Active Substance: NILOTINIB
     Dosage: 800 MG, QD (STARTED 15 DAYS AGO)
     Route: 048
  7. PONATINIB [Concomitant]
     Active Substance: PONATINIB
     Indication: PRODUCT USED FOR UNKNOWN INDICATION
     Dosage: UNK (APPROXIMATELY ONE YEAR AGO)
     Route: 065
     Dates: end: 202008

REACTIONS (17)
  - Abdominal pain upper [Unknown]
  - Chronic myeloid leukaemia recurrent [Recovered/Resolved]
  - Pyrexia [Recovered/Resolved]
  - Acute myeloid leukaemia [Unknown]
  - Platelet count increased [Unknown]
  - Headache [Recovered/Resolved]
  - Platelet count decreased [Unknown]
  - Defaecation disorder [Recovered/Resolved]
  - Chronic myeloid leukaemia transformation [Unknown]
  - Polymerase chain reaction positive [Unknown]
  - Inappropriate schedule of product administration [Unknown]
  - Dizziness [Recovered/Resolved]
  - Erythema [Unknown]
  - Haemoglobin decreased [Unknown]
  - White blood cell count increased [Unknown]
  - Drug ineffective [Unknown]
  - Diarrhoea [Unknown]

NARRATIVE: CASE EVENT DATE: 202008
